FAERS Safety Report 15735400 (Version 1)
Quarter: 2018Q4

REPORT INFORMATION
  Report Type: Spontaneous
  Country: FR (occurrence: FR)
  Receive Date: 20181218
  Receipt Date: 20181218
  Transmission Date: 20190205
  Serious: Yes (Hospitalization)
  Sender: FDA-Public Use
  Company Number: FR-PFIZER INC-2018511820

PATIENT
  Age: 93 Year
  Sex: Female

DRUGS (4)
  1. AMLOR [Suspect]
     Active Substance: AMLODIPINE BESYLATE
     Indication: HYPERTENSION
     Dosage: 5 MG, 1X/DAY
     Route: 048
     Dates: end: 20181025
  2. THERALENE [Suspect]
     Active Substance: TRIMEPRAZINE
     Indication: SLEEP DISORDER
     Dosage: 15 MG, 1X/DAY
     Route: 048
     Dates: start: 20181019, end: 20181022
  3. CYAMEMAZINE [Suspect]
     Active Substance: CYAMEMAZINE
     Indication: SLEEP DISORDER
     Dosage: 5 GTT, 1X/DAY
     Route: 048
     Dates: start: 20181017, end: 20181019
  4. XANAX [Suspect]
     Active Substance: ALPRAZOLAM
     Indication: SLEEP DISORDER
     Dosage: 0.25 MG, 1X/DAY
     Route: 048
     Dates: start: 20181005, end: 20181025

REACTIONS (3)
  - Product use in unapproved indication [Unknown]
  - Eczema [Recovered/Resolved]
  - Photosensitivity reaction [Recovered/Resolved]

NARRATIVE: CASE EVENT DATE: 20181019
